FAERS Safety Report 18926115 (Version 2)
Quarter: 2021Q1

REPORT INFORMATION
  Report Type: Spontaneous
  Country: JP (occurrence: JP)
  Receive Date: 20210223
  Receipt Date: 20210325
  Transmission Date: 20210420
  Serious: Yes (Hospitalization, Other)
  Sender: FDA-Public Use
  Company Number: JP-ROCHE-2775273

PATIENT
  Age: 8 Decade
  Sex: Female
  Weight: 55 kg

DRUGS (1)
  1. KADCYLA [Suspect]
     Active Substance: ADO-TRASTUZUMAB EMTANSINE
     Indication: BREAST CANCER
     Route: 041
     Dates: start: 20201224

REACTIONS (4)
  - Weight decreased [Recovering/Resolving]
  - Taste disorder [Unknown]
  - Decreased appetite [Unknown]
  - Constipation [Unknown]
